FAERS Safety Report 22315805 (Version 1)
Quarter: 2023Q2

REPORT INFORMATION
  Report Type: Spontaneous
  Country: EE (occurrence: EE)
  Receive Date: 20230512
  Receipt Date: 20230512
  Transmission Date: 20230721
  Serious: Yes (Other)
  Sender: FDA-Public Use
  Company Number: EE-002147023-NVSC2023EE100896

PATIENT
  Age: 17 Year
  Sex: Female

DRUGS (2)
  1. DEXAMETHASONE [Suspect]
     Active Substance: DEXAMETHASONE
     Indication: Eyelid rash
     Dosage: 20 TIMES
     Route: 047
  2. DEXAMETHASONE [Suspect]
     Active Substance: DEXAMETHASONE
     Indication: Conjunctivitis

REACTIONS (2)
  - Glaucomatous optic neuropathy [Unknown]
  - Cataract subcapsular [Unknown]
